FAERS Safety Report 8471299-X (Version None)
Quarter: 2012Q2

REPORT INFORMATION
  Report Type: 
  Country: None (occurrence: None)
  Receive Date: 20120627
  Receipt Date: 20120618
  Transmission Date: 20120825
  Serious: Yes (Other)
  Sender: FDA-Public Use
  Company Number: MX-SANOFI-AVENTIS-2011SA060076

PATIENT
  Age: 66 Year
  Sex: Female
  Weight: 41 kg

DRUGS (2)
  1. GLYBURIDE [Suspect]
     Indication: TYPE 2 DIABETES MELLITUS
     Route: 048
     Dates: start: 20101201
  2. GLIMEPIRIDE/METFORMIN [Suspect]
     Indication: TYPE 2 DIABETES MELLITUS
     Dosage: STRENGTH: GLIMEPIRIDE/METFORMIN 2 MG + 1000 MG
     Route: 048
     Dates: start: 20101201

REACTIONS (6)
  - DIARRHOEA [None]
  - CATARACT [None]
  - HYPERGLYCAEMIA [None]
  - HYPERTENSION [None]
  - TACHYCARDIA [None]
  - PAIN IN EXTREMITY [None]
